FAERS Safety Report 20056505 (Version 2)
Quarter: 2021Q4

REPORT INFORMATION
  Report Type: Spontaneous
  Country: US (occurrence: US)
  Receive Date: 20211111
  Receipt Date: 20211210
  Transmission Date: 20220304
  Serious: Yes (Other)
  Sender: FDA-Public Use
  Company Number: US-BAUSCH-BL-2021-036511

PATIENT
  Age: 71 Year
  Sex: Female

DRUGS (2)
  1. IPRATROPIUM BROMIDE [Suspect]
     Active Substance: IPRATROPIUM BROMIDE
     Indication: Nasal discomfort
     Dosage: 2 SPRAYS IN EACH NOSTRIL TWICE DAILY FOR 30 DAYS
     Route: 045
     Dates: start: 20210903, end: 20210903
  2. IPRATROPIUM BROMIDE [Suspect]
     Active Substance: IPRATROPIUM BROMIDE
     Dosage: 1 SPRAYS IN EACH NOSTRIL TWICE DAILY FOR 30 DAYS
     Route: 045
     Dates: start: 20210905, end: 20210905

REACTIONS (11)
  - Glaucoma [Unknown]
  - Abdominal pain upper [Recovered/Resolved]
  - Insomnia [Recovered/Resolved]
  - Burning sensation [Recovered/Resolved]
  - Erythema [Recovered/Resolved]
  - Swelling face [Recovered/Resolved]
  - Neuropathy peripheral [Not Recovered/Not Resolved]
  - Nausea [Recovered/Resolved]
  - Dizziness [Recovered/Resolved]
  - Intentional product use issue [Unknown]
  - Inappropriate schedule of product administration [Unknown]

NARRATIVE: CASE EVENT DATE: 20210901
